FAERS Safety Report 24137912 (Version 1)
Quarter: 2024Q3

REPORT INFORMATION
  Report Type: Spontaneous
  Country: US (occurrence: US)
  Receive Date: 20240725
  Receipt Date: 20240725
  Transmission Date: 20241016
  Serious: No
  Sender: TEVA
  Company Number: US-TEVA-VS-3222255

PATIENT
  Age: 20 Year
  Sex: Female

DRUGS (1)
  1. MODAFINIL [Suspect]
     Active Substance: MODAFINIL
     Indication: Product used for unknown indication
     Dosage: SPLITS IT IN HALF, ONLY TAKES 50 MG DAILY IN THE MORNING
     Route: 065

REACTIONS (2)
  - Anxiety [Unknown]
  - Hyperthermia [Unknown]
